FAERS Safety Report 5880342-3 (Version None)
Quarter: 2008Q3

REPORT INFORMATION
  Report Type: 
  Country: None (occurrence: None)
  Receive Date: 20080912
  Receipt Date: 20080909
  Transmission Date: 20090109
  Serious: Yes (Hospitalization)
  Sender: FDA-Public Use
  Company Number: DE-B.I. PHARMACEUTICALS,INC./RIDGEFIELD-2008-DE-04985DE

PATIENT
  Sex: Male
  Weight: 72 kg

DRUGS (2)
  1. VIRAMUNE [Suspect]
     Indication: HIV INFECTION
     Dosage: 400MG
     Route: 048
     Dates: start: 20080725, end: 20080816
  2. TRUVADA [Concomitant]
     Indication: HIV INFECTION
     Dosage: 300/200 MG
     Route: 048
     Dates: start: 20080725, end: 20080821

REACTIONS (7)
  - CHOLECYSTITIS ACUTE [None]
  - DRUG ERUPTION [None]
  - EPIDIDYMITIS [None]
  - HEPATIC ENZYME INCREASED [None]
  - HEPATITIS [None]
  - PYREXIA [None]
  - RASH [None]
